FAERS Safety Report 5910300-1 (Version None)
Quarter: 2008Q4

REPORT INFORMATION
  Report Type: 
  Country: None (occurrence: None)
  Receive Date: 20081007
  Receipt Date: 20080929
  Transmission Date: 20090506
  Serious: Yes (Hospitalization)
  Sender: FDA-Public Use
  Company Number: US-ASTRAZENECA-2008UW21010

PATIENT
  Age: 82 Year
  Sex: Female

DRUGS (2)
  1. NEXIUM IV [Suspect]
     Route: 042
  2. NEXIUM [Suspect]
     Indication: GASTRIC DISORDER
     Route: 048

REACTIONS (1)
  - RECTAL HAEMORRHAGE [None]
